FAERS Safety Report 8041390-0 (Version None)
Quarter: 2012Q1

REPORT INFORMATION
  Report Type: 
  Country: None (occurrence: None)
  Receive Date: 20120112
  Receipt Date: 20120104
  Transmission Date: 20120608
  Serious: Yes (Hospitalization)
  Sender: FDA-Public Use
  Company Number: US-BAYER-2011-080128

PATIENT
  Age: 35 Year
  Sex: Female
  Weight: 100 kg

DRUGS (8)
  1. YAZ [Suspect]
     Indication: CONTRACEPTION
     Dosage: UNK
     Dates: start: 20080908, end: 20091001
  2. VALTREX [Concomitant]
  3. NAPROXEN [Concomitant]
     Dosage: 550 MG, UNK
  4. NEXIUM [Concomitant]
     Dosage: 40 MG, QD
  5. FLOVENT [Concomitant]
     Dosage: UNK UNK, BID
     Route: 055
  6. ADVAIR DISKUS 100/50 [Concomitant]
     Route: 055
  7. SINGULAIR [Concomitant]
     Dosage: 10 MG, QD
  8. PREMARIN [Concomitant]
     Dosage: 1.25 MG, QD
     Dates: start: 20090612, end: 20090616

REACTIONS (7)
  - CHOLECYSTITIS CHRONIC [None]
  - ABDOMINAL PAIN UPPER [None]
  - GALLBLADDER DISORDER [None]
  - INJURY [None]
  - ANXIETY [None]
  - EMOTIONAL DISTRESS [None]
  - PSYCHOLOGICAL TRAUMA [None]
